FAERS Safety Report 11530232 (Version 1)
Quarter: 2015Q3

REPORT INFORMATION
  Report Type: Spontaneous
  Country: US (occurrence: None)
  Receive Date: 20150918
  Receipt Date: 20150918
  Transmission Date: 20151125
  Serious: Yes (Hospitalization)
  Sender: FDA-Public Use
  Company Number: None

PATIENT
  Age: 59 Year
  Sex: Female
  Weight: 79 kg

DRUGS (21)
  1. LIDOCAINE. [Concomitant]
     Active Substance: LIDOCAINE
  2. HYDROMORPHONE [Concomitant]
     Active Substance: HYDROMORPHONE
  3. VANCOMYCIN [Concomitant]
     Active Substance: VANCOMYCIN
  4. AMLODIPINE [Concomitant]
     Active Substance: AMLODIPINE BESYLATE
  5. OXYCODONE [Concomitant]
     Active Substance: OXYCODONE
  6. DEXAMETHASONE. [Concomitant]
     Active Substance: DEXAMETHASONE
  7. HYDRALAZINE [Concomitant]
     Active Substance: HYDRALAZINE HYDROCHLORIDE
  8. LACTATED RINGERS [Concomitant]
     Active Substance: CALCIUM CHLORIDE\POTASSIUM CHLORIDE\SODIUM CHLORIDE\SODIUM LACTATE
  9. NEOSTIGMINE [Concomitant]
     Active Substance: NEOSTIGMINE
  10. TELMISARTAN. [Concomitant]
     Active Substance: TELMISARTAN
  11. ROCURONIUM [Concomitant]
     Active Substance: ROCURONIUM BROMIDE
  12. ALBUTEROL. [Concomitant]
     Active Substance: ALBUTEROL
  13. FENTANYL. [Concomitant]
     Active Substance: FENTANYL
  14. RIVAROXABAN 10 MG JANSSEN PHARMACEUTICALS, INC [Suspect]
     Active Substance: RIVAROXABAN
     Indication: THROMBOSIS PROPHYLAXIS
     Dosage: 1 TAB QD ORAL
     Route: 048
     Dates: start: 20150901, end: 20150905
  15. NORCO (HYDROCODONE/ACETAMINOPHEN) [Concomitant]
  16. KETAMINE [Concomitant]
     Active Substance: KETAMINE
  17. ONDANSETRON [Concomitant]
     Active Substance: ONDANSETRON
  18. SEVOFLURANE. [Concomitant]
     Active Substance: SEVOFLURANE
  19. ROPIVACAINE [Concomitant]
     Active Substance: ROPIVACAINE
  20. CITALOPRAM [Concomitant]
     Active Substance: CITALOPRAM HYDROBROMIDE
  21. GLYCOPYRROLATE. [Concomitant]
     Active Substance: GLYCOPYRROLATE

REACTIONS (5)
  - Rash [None]
  - Rash maculo-papular [None]
  - Peripheral swelling [None]
  - Lip swelling [None]
  - Genital rash [None]

NARRATIVE: CASE EVENT DATE: 20150901
